FAERS Safety Report 5950717-2 (Version None)
Quarter: 2008Q4

REPORT INFORMATION
  Report Type: 
  Country: None (occurrence: None)
  Receive Date: 20081112
  Receipt Date: 20081103
  Transmission Date: 20090506
  Serious: Yes (Other)
  Sender: FDA-Public Use
  Company Number: US-GILEAD-2008-0018831

PATIENT
  Sex: Male

DRUGS (1)
  1. ATRIPLA [Suspect]

REACTIONS (1)
  - HAEMOLYTIC ANAEMIA [None]
